FAERS Safety Report 10204400 (Version 1)
Quarter: 2014Q2

REPORT INFORMATION
  Report Type: Spontaneous
  Country: US (occurrence: US)
  Receive Date: 20140529
  Receipt Date: 20140529
  Transmission Date: 20141212
  Serious: Yes (Other)
  Sender: FDA-Public Use
  Company Number: US-PFIZER INC-2014138399

PATIENT
  Sex: Female

DRUGS (1)
  1. ROBITUSSIN MAXIMUM STRENGTH NIGHTTIME COUGH DM [Suspect]
     Indication: COUGH
     Dosage: UNK, 1X/DAY
     Route: 048
     Dates: start: 20140517, end: 20140518

REACTIONS (5)
  - Cerebrovascular accident [Recovered/Resolved]
  - Dizziness [Recovered/Resolved]
  - Fear [Recovered/Resolved]
  - Vertigo [Recovered/Resolved]
  - Activities of daily living impaired [Recovered/Resolved]
